FAERS Safety Report 8773941 (Version 1)
Quarter: 2012Q4

REPORT INFORMATION
  Report Type: 
  Country: US (occurrence: US)
  Receive Date: 20120907
  Receipt Date: 20120907
  Transmission Date: 20130627
  Serious: No
  Sender: FDA-Public Use
  Company Number: US-PFIZER INC-2012220316

PATIENT
  Age: 73 Year
  Sex: Male
  Weight: 72.56 kg

DRUGS (3)
  1. PRISTIQ [Suspect]
     Indication: DEPRESSION
     Dosage: 50 mg, daily
     Dates: start: 20120831
  2. AMOXICILLIN [Suspect]
     Indication: SINUSITIS
     Dosage: UNK, 2x/day
     Dates: start: 2012, end: 201206
  3. ZIAC [Concomitant]
     Indication: HYPERTENSION
     Dosage: ^10 mg^ daily

REACTIONS (2)
  - Abdominal pain upper [Unknown]
  - Nausea [Not Recovered/Not Resolved]
